FAERS Safety Report 6946323-3 (Version None)
Quarter: 2010Q3

REPORT INFORMATION
  Report Type: 
  Country: None (occurrence: None)
  Receive Date: 20100824
  Receipt Date: 20100811
  Transmission Date: 20110219
  Serious: Yes (Hospitalization)
  Sender: FDA-Public Use
  Company Number: 2010MA001652

PATIENT
  Age: 67 Year
  Sex: Female

DRUGS (2)
  1. PROPYLTHIOURACIL [Suspect]
     Indication: HYPERTHYROIDISM
     Dosage: 100 MG; TID;
  2. STEROIDS [Concomitant]

REACTIONS (17)
  - BLOOD THYROID STIMULATING HORMONE DECREASED [None]
  - CONDITION AGGRAVATED [None]
  - DYSPNOEA [None]
  - FATIGUE [None]
  - FLUSHING [None]
  - HYPERHIDROSIS [None]
  - HYPERREFLEXIA [None]
  - HYPOXIA [None]
  - LEUKOCYTOCLASTIC VASCULITIS [None]
  - LEUKOPENIA [None]
  - LUNG INFILTRATION [None]
  - NEUTROPHIL COUNT DECREASED [None]
  - PALPITATIONS [None]
  - PULMONARY HAEMORRHAGE [None]
  - PYREXIA [None]
  - TACHYCARDIA [None]
  - WEIGHT DECREASED [None]
